FAERS Safety Report 5686598-4 (Version None)
Quarter: 2008Q1

REPORT INFORMATION
  Report Type: 
  Country: None (occurrence: None)
  Receive Date: 20080328
  Receipt Date: 20070509
  Transmission Date: 20080703
  Serious: No
  Sender: FDA-Public Use
  Company Number: US-BAYER-US-2007-016856

PATIENT
  Age: 28 Year
  Sex: Female

DRUGS (3)
  1. MIRENA [Suspect]
     Indication: CONTRACEPTION
     Route: 015
     Dates: start: 20070508
  2. NO CONCOMITANT MEDICATION [Concomitant]
  3. MIRCETTE [Concomitant]

REACTIONS (2)
  - COMPLICATION OF DEVICE INSERTION [None]
  - LOSS OF CONSCIOUSNESS [None]
